FAERS Safety Report 10077490 (Version 1)
Quarter: 2014Q2

REPORT INFORMATION
  Report Type: Spontaneous
  Country: US (occurrence: US)
  Receive Date: 20140414
  Receipt Date: 20140414
  Transmission Date: 20141212
  Serious: No
  Sender: FDA-Public Use
  Company Number: US-BANPHARM-20131674

PATIENT
  Sex: Female

DRUGS (2)
  1. NAPROXEN SODIUM 220 MG [Suspect]
     Indication: ARTHRALGIA
     Dosage: 400 MG, BID, PRN,
     Route: 048
     Dates: start: 20130804, end: 20130831
  2. NAPROXEN SODIUM 220 MG [Suspect]
     Indication: ARTHRALGIA
     Dosage: 660-880 MG, PRN,
     Route: 048
     Dates: start: 20130804, end: 20130831

REACTIONS (3)
  - Incorrect dose administered [Unknown]
  - Skin burning sensation [Recovering/Resolving]
  - Erythema [Recovering/Resolving]
